FAERS Safety Report 10404468 (Version 1)
Quarter: 2014Q1

REPORT INFORMATION
  Report Type: Spontaneous
  Country: US (occurrence: None)
  Receive Date: 20140306
  Receipt Date: 20140306
  Transmission Date: 20141002
  Serious: Yes (Other)
  Sender: FDA-Public Use
  Company Number: 163-21880-12070259

PATIENT
  Age: 82 Year
  Sex: Male

DRUGS (11)
  1. REVLIMID (LENALIDOMIDE) (CAPSULES) [Suspect]
     Indication: PLASMA CELL MYELOMA
     Dosage: 10 MG, 21 IN 21 D, PO
     Route: 048
     Dates: start: 20110303
  2. ACETAMINOPHEN (PARACETAMOL) [Concomitant]
  3. VIIBRYD (VILAZODONE HYDROCHLORIDE) [Concomitant]
  4. ASPIIRIN (ACETYLSALICYLIC ACID) [Concomitant]
  5. B-12 (CYANOCOBALAMIN) [Concomitant]
  6. CALCIUM CITRATE + D (CALCIUM CITRATE W/COLECALCIFEROL) [Concomitant]
  7. CARVEDILOL (CARVEDILOL) [Concomitant]
  8. COLACE (DOCUSATE SODIUM) [Concomitant]
  9. DEXAMETHASONE (DEXAMETHASONE) [Concomitant]
  10. LIPITOR (ATORVASTATIN) [Concomitant]
  11. FISH OIL (FISH OIL) [Concomitant]

REACTIONS (3)
  - Depression [None]
  - Fatigue [None]
  - Asthenia [None]
